FAERS Safety Report 12653792 (Version 2)
Quarter: 2016Q3

REPORT INFORMATION
  Report Type: Spontaneous
  Country: CN (occurrence: CN)
  Receive Date: 20160816
  Receipt Date: 20160817
  Transmission Date: 20161109
  Serious: No
  Sender: FDA-Public Use
  Company Number: CN-JNJFOC-20160802483

PATIENT
  Age: 71 Year
  Sex: Male
  Weight: 60 kg

DRUGS (1)
  1. TYLENOL [Suspect]
     Active Substance: ACETAMINOPHEN
     Indication: PYREXIA
     Dosage: 1 TABLET, 3 TIMES DAILY
     Route: 048
     Dates: start: 20160311, end: 20160327

REACTIONS (1)
  - Hepatitis [Recovering/Resolving]

NARRATIVE: CASE EVENT DATE: 20160327
